FAERS Safety Report 4877224-2 (Version None)
Quarter: 2005Q4

REPORT INFORMATION
  Report Type: 
  Country: None (occurrence: None)
  Receive Date: 20051206
  Receipt Date: 20050923
  Transmission Date: 20060501
  Serious: No
  Sender: FDA-Public Use
  Company Number: USA0509109027

PATIENT
  Sex: Female

DRUGS (13)
  1. CYMBALTA [Suspect]
     Dosage: 60 MG
     Dates: start: 20050913
  2. VICODIN [Concomitant]
  3. LASIX [Concomitant]
  4. SENNA [Concomitant]
  5. TOPROL-XL [Concomitant]
  6. DETROL LA [Concomitant]
  7. SPIRONOLACTONE [Concomitant]
  8. NOVOLIN 70/30 [Concomitant]
  9. WARFARIN SODIUM [Concomitant]
  10. ZANTAC [Concomitant]
  11. CELEBREX [Concomitant]
  12. CALCIUM GLUCONATE [Concomitant]
  13. SYNTHROID [Concomitant]

REACTIONS (1)
  - PROTHROMBIN TIME PROLONGED [None]
